FAERS Safety Report 6130303-4 (Version None)
Quarter: 2009Q1

REPORT INFORMATION
  Report Type: 
  Country: None (occurrence: None)
  Receive Date: 20090324
  Receipt Date: 20090312
  Transmission Date: 20090719
  Serious: Yes (Other)
  Sender: FDA-Public Use
  Company Number: FR-PFIZER INC-2009185247

PATIENT

DRUGS (10)
  1. XANAX [Suspect]
     Indication: ANXIETY
     Dosage: UNK MG, 3X/DAY
     Route: 048
     Dates: start: 20061127, end: 20061130
  2. CAPTOPRIL AND HYDROCHLOROTHIAZIDE [Concomitant]
  3. VERAPAMIL [Concomitant]
  4. FLECAINIDE [Concomitant]
  5. FLUINDIONE [Concomitant]
  6. MONTELUKAST [Concomitant]
  7. FLUTICASONE [Concomitant]
  8. SALMETEROL [Concomitant]
  9. KETOPROFEN [Concomitant]
  10. ALL OTHER THERAPEUTIC PRODUCTS [Concomitant]

REACTIONS (2)
  - AMNESIA [None]
  - MULTIPLE INJURIES [None]
